FAERS Safety Report 9461226 (Version 1)
Quarter: 2013Q3

REPORT INFORMATION
  Report Type: Spontaneous
  Country: US (occurrence: None)
  Receive Date: 20130814
  Receipt Date: 20130814
  Transmission Date: 20140515
  Serious: Yes (Hospitalization, Disabling)
  Sender: FDA-Public Use
  Company Number: None

PATIENT
  Age: 36 Year
  Sex: Female
  Weight: 74.84 kg

DRUGS (11)
  1. CYMBALTA [Suspect]
     Indication: OSTEOARTHRITIS
     Dosage: 30MG 30 1 X A DAY BY MTH
     Route: 048
     Dates: start: 20130211, end: 20130520
  2. CLONAZEPAM [Concomitant]
  3. LUNESTA [Concomitant]
  4. PROMETHAZINE [Concomitant]
  5. MECLIZINE [Concomitant]
  6. BENICAR [Concomitant]
  7. FISH OIL [Concomitant]
  8. MULTI VITAMIN [Concomitant]
  9. COQ10 [Concomitant]
  10. B12 [Concomitant]
  11. MILK THISTLE [Concomitant]

REACTIONS (36)
  - Pneumonia [None]
  - Loss of consciousness [None]
  - Hypotension [None]
  - Amnesia [None]
  - Activities of daily living impaired [None]
  - Speech disorder [None]
  - Nausea [None]
  - Pruritus [None]
  - Hyperhidrosis [None]
  - Feeling of body temperature change [None]
  - Dizziness [None]
  - Feeling drunk [None]
  - Eyelid function disorder [None]
  - Headache [None]
  - Fatigue [None]
  - Feeling abnormal [None]
  - Faeces discoloured [None]
  - Diarrhoea [None]
  - Constipation [None]
  - Paraesthesia [None]
  - Aphasia [None]
  - Paraesthesia [None]
  - Muscle spasms [None]
  - Altered visual depth perception [None]
  - Decreased appetite [None]
  - Disturbance in attention [None]
  - Abnormal dreams [None]
  - Nightmare [None]
  - Hyperacusis [None]
  - Agitation [None]
  - Anger [None]
  - Parosmia [None]
  - Dysgeusia [None]
  - Post-traumatic stress disorder [None]
  - Vision blurred [None]
  - Balance disorder [None]
